FAERS Safety Report 15092864 (Version 1)
Quarter: 2018Q2

REPORT INFORMATION
  Report Type: Report from Study
  Country: ES (occurrence: ES)
  Receive Date: 20180629
  Receipt Date: 20180629
  Transmission Date: 20180711
  Serious: Yes (Hospitalization, Other)
  Sender: FDA-Public Use
  Company Number: ES-BRISTOL-MYERS SQUIBB COMPANY-BMS-2018-060508

PATIENT
  Age: 72 Year
  Sex: Male
  Weight: 48 kg

DRUGS (3)
  1. GALUNISERTIB [Suspect]
     Active Substance: GALUNISERTIB
     Indication: NON-SMALL CELL LUNG CANCER
     Dosage: 150 MG, BID, INTERRUPTED:13JUN18
     Route: 048
     Dates: start: 20171228
  2. CODEINE SULFATE. [Concomitant]
     Active Substance: CODEINE SULFATE
     Indication: COUGH
     Route: 065
  3. NIVOLUMAB [Suspect]
     Active Substance: NIVOLUMAB
     Indication: NON-SMALL CELL LUNG CANCER
     Dosage: 3 MG/KG, INTERRUPTED:13JUN18
     Route: 042
     Dates: start: 20171228

REACTIONS (1)
  - Respiratory tract infection [Unknown]

NARRATIVE: CASE EVENT DATE: 20180606
